FAERS Safety Report 8124903-X (Version None)
Quarter: 2012Q1

REPORT INFORMATION
  Report Type: 
  Country: None (occurrence: None)
  Receive Date: 20120209
  Receipt Date: 20120202
  Transmission Date: 20120608
  Serious: Yes (Life-Threatening)
  Sender: FDA-Public Use
  Company Number: JP-PFIZER INC-2012008678

PATIENT
  Age: 69 Year
  Sex: Male
  Weight: 59 kg

DRUGS (8)
  1. ROCURONIUM BROMIDE [Suspect]
     Indication: MUSCLE RELAXANT THERAPY
     Dosage: 25 MG, 2X/DAY
     Route: 042
     Dates: start: 20110511
  2. CEFAZOLIN SODIUM [Suspect]
     Indication: ANTIBIOTIC PROPHYLAXIS
     Dosage: 2 G, 1X/DAY
     Route: 042
     Dates: start: 20110511
  3. MIRACLID [Suspect]
     Indication: SHOCK
     Dosage: 300000 IU, 1X/DAY
     Route: 042
     Dates: start: 20110511
  4. SOLU-MEDROL [Suspect]
     Indication: SHOCK
     Dosage: 1000 MG, 1X/DAY
     Route: 042
     Dates: start: 20110511, end: 20110511
  5. ULTIVA [Concomitant]
     Indication: ANALGESIC THERAPY
     Dosage: 2 MG, 3X/DAY
     Dates: start: 20110511
  6. TRANEXAMIC ACID [Suspect]
     Indication: PROCOAGULANT THERAPY
     Dosage: 1 G, 1X/DAY
     Route: 042
     Dates: start: 20110511
  7. MIDAZOLAM HCL [Suspect]
     Indication: SEDATIVE THERAPY
     Dosage: 10 MG, 1X/DAY
     Route: 042
     Dates: start: 20110511
  8. PROPOFOL [Concomitant]
     Indication: SEDATIVE THERAPY
     Dosage: 500 MG, 4X/DAY
     Dates: start: 20110511

REACTIONS (1)
  - ANAPHYLACTIC SHOCK [None]
